FAERS Safety Report 24801714 (Version 2)
Quarter: 2025Q1

REPORT INFORMATION
  Report Type: Spontaneous
  Country: US (occurrence: US)
  Receive Date: 20250102
  Receipt Date: 20250108
  Transmission Date: 20250409
  Serious: No
  Sender: MERCK
  Company Number: US-009507513-2412USA004112

PATIENT
  Age: 62 Year
  Sex: Female

DRUGS (1)
  1. WINREVAIR [Suspect]
     Active Substance: SOTATERCEPT-CSRK
     Dosage: 1.1 MILLILITER, Q3W
     Dates: start: 2024

REACTIONS (8)
  - Poor quality device used [Unknown]
  - Exposure via skin contact [Unknown]
  - Device leakage [Unknown]
  - Device issue [Unknown]
  - Device connection issue [Unknown]
  - Product preparation error [Unknown]
  - Product communication issue [Unknown]
  - No adverse event [Unknown]

NARRATIVE: CASE EVENT DATE: 20241210
